FAERS Safety Report 7282775-X (Version None)
Quarter: 2011Q1

REPORT INFORMATION
  Report Type: 
  Country: None (occurrence: None)
  Receive Date: 20110209
  Receipt Date: 20110205
  Transmission Date: 20110831
  Serious: Yes (Other)
  Sender: FDA-Public Use
  Company Number: HR-BAYER-2011-011650

PATIENT
  Age: 26 Year
  Sex: Female

DRUGS (2)
  1. YAZ 0,02 MG/3,0 MG FILM COATED TABLETS [Suspect]
     Indication: CONTRACEPTION
  2. YASMIN 0,03 MG/3 MG FILM COATED TABLETS [Suspect]
     Indication: CONTRACEPTION
     Dosage: UNK

REACTIONS (7)
  - NAUSEA [None]
  - PAIN IN EXTREMITY [None]
  - HEADACHE [None]
  - BREAST PAIN [None]
  - VAGINAL HAEMORRHAGE [None]
  - BREAST TENDERNESS [None]
  - PARAESTHESIA [None]
